FAERS Safety Report 19262577 (Version 1)
Quarter: 2021Q2

REPORT INFORMATION
  Report Type: Spontaneous
  Country: JP (occurrence: JP)
  Receive Date: 20210517
  Receipt Date: 20210517
  Transmission Date: 20210717
  Serious: Yes (Life-Threatening, Hospitalization, Other)
  Sender: FDA-Public Use
  Company Number: JP-CELLTRION INC.-2021JP006488

PATIENT

DRUGS (3)
  1. PERJETA [Suspect]
     Active Substance: PERTUZUMAB
     Indication: BREAST CANCER
     Dosage: 420 MG, QD
     Route: 042
     Dates: start: 20200313, end: 20210508
  2. DOCETAXEL. [Suspect]
     Active Substance: DOCETAXEL
     Indication: PRODUCT USED FOR UNKNOWN INDICATION
     Dosage: UNK
  3. TRASTUZUMAB BS FOR I.V. INFUSION [NK] [Suspect]
     Active Substance: TRASTUZUMAB
     Indication: BREAST CANCER
     Dosage: 264 MG, QD
     Route: 042
     Dates: start: 20200313, end: 20210508

REACTIONS (4)
  - Lymphangitis [Unknown]
  - Cardiac failure [Recovered/Resolved]
  - Off label use [Unknown]
  - Radiation skin injury [Unknown]

NARRATIVE: CASE EVENT DATE: 20201102
